FAERS Safety Report 5285042-9 (Version None)
Quarter: 2007Q2

REPORT INFORMATION
  Report Type: 
  Country: None (occurrence: None)
  Receive Date: 20070403
  Receipt Date: 20070123
  Transmission Date: 20071010
  Serious: Yes (Hospitalization)
  Sender: FDA-Public Use
  Company Number: US-PFIZER INC-2007019691

PATIENT
  Sex: Male

DRUGS (2)
  1. XANAX XR [Suspect]
     Dosage: TEXT:UNKNOWN
  2. MORPHINE [Interacting]
     Dosage: TEXT:UNKNOWN

REACTIONS (1)
  - DRUG INTERACTION [None]
